FAERS Safety Report 18665432 (Version 6)
Quarter: 2024Q2

REPORT INFORMATION
  Report Type: Spontaneous
  Country: US (occurrence: US)
  Receive Date: 20201225
  Receipt Date: 20240506
  Transmission Date: 20240716
  Serious: Yes (Hospitalization, Other)
  Sender: FDA-Public Use
  Company Number: US-GLAXOSMITHKLINE-US2020AMR252401

PATIENT

DRUGS (3)
  1. LAMICTAL XR [Suspect]
     Active Substance: LAMOTRIGINE
     Indication: Epilepsy
     Dosage: 200 MG (200, 1 TABLET BY MOUTH DAILY 1 HOUR BEFORE BREAKFAST)
     Route: 065
     Dates: start: 198301
  2. LAMICTAL XR [Suspect]
     Active Substance: LAMOTRIGINE
     Indication: Emphysema
     Dosage: 200 MG
     Route: 065
     Dates: start: 20210501
  3. LAMICTAL XR [Suspect]
     Active Substance: LAMOTRIGINE
     Dosage: 300 MG (1 TABLET ORAL DAILY)
     Route: 048

REACTIONS (7)
  - Epilepsy [Unknown]
  - Hospitalisation [Unknown]
  - Neurological examination [Unknown]
  - Seizure [Not Recovered/Not Resolved]
  - Nephrolithiasis [Unknown]
  - Surgery [Unknown]
  - Product use in unapproved indication [Unknown]

NARRATIVE: CASE EVENT DATE: 20240401
